FAERS Safety Report 10528599 (Version 1)
Quarter: 2014Q4

REPORT INFORMATION
  Report Type: Spontaneous
  Country: US (occurrence: None)
  Receive Date: 20141017
  Receipt Date: 20141017
  Transmission Date: 20150528
  Serious: Yes (Other)
  Sender: FDA-Public Use
  Company Number: None

PATIENT
  Age: 05 Year
  Sex: Male
  Weight: 45.36 kg

DRUGS (1)
  1. MIRALAX [Suspect]
     Active Substance: POLYETHYLENE GLYCOL 3350
     Indication: ENCOPRESIS
     Route: 048
     Dates: start: 20110312, end: 20120912

REACTIONS (2)
  - Tooth injury [None]
  - Gingival bleeding [None]
